FAERS Safety Report 8447878-2 (Version None)
Quarter: 2012Q2

REPORT INFORMATION
  Report Type: 
  Country: None (occurrence: None)
  Receive Date: 20120619
  Receipt Date: 20120605
  Transmission Date: 20120825
  Serious: Yes (Hospitalization, Disabling)
  Sender: FDA-Public Use
  Company Number: FI-BAYER-2012-057866

PATIENT
  Age: 23 Year
  Sex: Female

DRUGS (16)
  1. HYDROXYUREA [Concomitant]
     Dosage: 750 MG, BID
     Route: 048
     Dates: start: 20081103, end: 20090612
  2. HYDROXYUREA [Concomitant]
     Dosage: 500 MG, BID
     Route: 048
     Dates: start: 20110117
  3. PEGINTERFERON ALFA-2A [Suspect]
     Indication: ESSENTIAL THROMBOCYTHAEMIA
     Dosage: 3.0 MILLION IU 3 TIMES PER WEEK
     Route: 058
     Dates: start: 20030819, end: 20030915
  4. PEGINTERFERON ALFA-2A [Suspect]
     Dosage: 3 MILL IU 3 TIMES PER WEEK
     Route: 058
     Dates: start: 20051231, end: 20060727
  5. HYDROXYUREA [Concomitant]
     Dosage: 15500 MG PER WEEK
     Dates: start: 20080320, end: 20080512
  6. PEGINTERFERON ALFA-2A [Suspect]
     Dosage: 3 MILL IU 3 TIMES PER WEEK
     Dates: start: 20060727, end: 20080215
  7. HYDROXYUREA [Concomitant]
     Dosage: 1000 MG, BID
     Dates: start: 20080512, end: 20081103
  8. ANAGRELIDE HCL [Suspect]
     Indication: ESSENTIAL THROMBOCYTHAEMIA
     Dosage: 1 MG, BID
     Route: 048
     Dates: start: 20031118, end: 20041201
  9. ASPIRIN [Suspect]
     Dosage: 100 MG, QD
     Route: 048
     Dates: start: 20041217, end: 20060601
  10. HYDROXYUREA [Concomitant]
     Dosage: 11500 MG PER WEEK
     Route: 048
     Dates: start: 20090612, end: 20090701
  11. ANAGRELIDE HCL [Suspect]
     Dosage: 1 MG, BID
     Route: 048
     Dates: start: 20050622, end: 20051001
  12. ASPIRIN [Suspect]
     Indication: ESSENTIAL THROMBOCYTHAEMIA
     Dosage: 100 MG, QD
     Route: 048
     Dates: start: 20070227
  13. HYDROXYUREA [Concomitant]
     Dosage: 1000 MG, BID
     Dates: start: 20080220, end: 20080320
  14. PEGINTERFERON ALFA-2A [Suspect]
     Dosage: 3.0 MILLION IU 3 TIMES PER WEEK
     Route: 058
     Dates: start: 20050217, end: 20050622
  15. LAMOTRIGINE [Concomitant]
     Indication: MIGRAINE
     Dosage: UNK
     Dates: start: 20051220
  16. HYDROXYUREA [Concomitant]
     Dosage: 500 MG, BID
     Route: 048
     Dates: start: 20080215, end: 20080220

REACTIONS (3)
  - VASCULITIS [None]
  - VASCULITIS CEREBRAL [None]
  - CEREBROVASCULAR DISORDER [None]
